FAERS Safety Report 15164929 (Version 1)
Quarter: 2018Q3

REPORT INFORMATION
  Report Type: Spontaneous
  Country: US (occurrence: US)
  Receive Date: 20180719
  Receipt Date: 20180719
  Transmission Date: 20181010
  Serious: No
  Sender: FDA-Public Use
  Company Number: US-PFIZER INC-2018289225

PATIENT
  Sex: Female

DRUGS (1)
  1. EUCRISA [Suspect]
     Active Substance: CRISABOROLE
     Dosage: SHE APPLIED A THIN LAYER TWICE A DAY

REACTIONS (2)
  - Dermatitis atopic [Not Recovered/Not Resolved]
  - Condition aggravated [Not Recovered/Not Resolved]
